FAERS Safety Report 6824411-X (Version None)
Quarter: 2010Q3

REPORT INFORMATION
  Report Type: 
  Country: None (occurrence: None)
  Receive Date: 20100708
  Receipt Date: 20061021
  Transmission Date: 20110219
  Serious: No
  Sender: FDA-Public Use
  Company Number: US-PFIZER INC-2006129746

PATIENT
  Sex: Female
  Weight: 56.7 kg

DRUGS (5)
  1. CHANTIX [Suspect]
     Indication: SMOKING CESSATION THERAPY
     Route: 048
     Dates: start: 20060923, end: 20061014
  2. FOSAMAX [Concomitant]
  3. ADVAIR DISKUS 100/50 [Concomitant]
  4. CALCIUM CARBONATE [Concomitant]
  5. ALL OTHER THERAPEUTIC PRODUCTS [Concomitant]

REACTIONS (1)
  - RASH [None]
